FAERS Safety Report 6861529-X (Version None)
Quarter: 2010Q3

REPORT INFORMATION
  Report Type: 
  Country: None (occurrence: None)
  Receive Date: 20100720
  Receipt Date: 20100709
  Transmission Date: 20110219
  Serious: Yes (Life-Threatening, Hospitalization)
  Sender: FDA-Public Use
  Company Number: CH-BRISTOL-MYERS SQUIBB COMPANY-15199102

PATIENT
  Age: 54 Year
  Sex: Female

DRUGS (1)
  1. ERBITUX [Suspect]
     Indication: HEAD AND NECK CANCER
     Dosage: 35.7143MG/M2/DAY
     Route: 042
     Dates: start: 20100406, end: 20100511

REACTIONS (1)
  - PNEUMATOSIS INTESTINALIS [None]
